FAERS Safety Report 13210010 (Version 1)
Quarter: 2017Q1

REPORT INFORMATION
  Report Type: Spontaneous
  Country: GB (occurrence: GB)
  Receive Date: 20170210
  Receipt Date: 20170210
  Transmission Date: 20170428
  Serious: No
  Sender: FDA-Public Use
  Company Number: GB-SCIEGEN PHARMACEUTICALS INC-2017SCISPO00125

PATIENT
  Age: 36 Year
  Sex: Female

DRUGS (2)
  1. NEVIRAPINE TABLETS [Suspect]
     Active Substance: NEVIRAPINE
     Indication: HIV INFECTION
     Dosage: 400 UNK, UNK
     Route: 048
     Dates: start: 20101007
  2. TRUVADA [Suspect]
     Active Substance: EMTRICITABINE\TENOFOVIR DISOPROXIL FUMARATE
     Indication: HIV INFECTION
     Dosage: 1 TAB OR CAPS
     Route: 048
     Dates: start: 20101007

REACTIONS (1)
  - Exposure during pregnancy [Unknown]
